FAERS Safety Report 19877887 (Version 6)
Quarter: 2022Q1

REPORT INFORMATION
  Report Type: Other
  Country: US (occurrence: US)
  Receive Date: 20210924
  Receipt Date: 20220204
  Transmission Date: 20220423
  Serious: No
  Sender: FDA-Public Use
  Company Number: US-NEUROCRINE BIOSCIENCES INC.-2021NBI05211

PATIENT

DRUGS (6)
  1. INGREZZA [Suspect]
     Active Substance: VALBENAZINE
     Indication: Tardive dyskinesia
     Dosage: 60 MILLIGRAM, QD
     Route: 048
     Dates: start: 20211130
  2. INGREZZA [Suspect]
     Active Substance: VALBENAZINE
     Dosage: 80 MILLIGRAM, QD
     Route: 048
     Dates: start: 20210910, end: 20211010
  3. INGREZZA [Suspect]
     Active Substance: VALBENAZINE
     Dosage: 80 MILLIGRAM, QD
     Route: 048
     Dates: start: 20210811
  4. RISPERIDONE [Concomitant]
     Active Substance: RISPERIDONE
     Indication: Bipolar disorder
     Dosage: 2 MILLIGRAM
     Route: 048
  5. DEPAKOTE [Concomitant]
     Active Substance: DIVALPROEX SODIUM
     Indication: Bipolar disorder
     Dosage: 500 MILLIGRAM, BID
     Route: 048
  6. BUPROPION [Concomitant]
     Active Substance: BUPROPION
     Indication: Depression
     Dosage: 300 MILLIGRAM

REACTIONS (5)
  - Abnormal dreams [Recovered/Resolved]
  - Fatigue [Recovered/Resolved]
  - Somnolence [Recovered/Resolved]
  - Balance disorder [Recovered/Resolved]
  - Drooling [Recovered/Resolved]

NARRATIVE: CASE EVENT DATE: 20210101
